FAERS Safety Report 7156640-2 (Version None)
Quarter: 2010Q4

REPORT INFORMATION
  Report Type: 
  Country: None (occurrence: None)
  Receive Date: 20101214
  Receipt Date: 20100721
  Transmission Date: 20110411
  Serious: No
  Sender: FDA-Public Use
  Company Number: US-ASTRAZENECA-2008UW13401

PATIENT
  Sex: Female

DRUGS (4)
  1. CRESTOR [Suspect]
     Route: 048
  2. CRESTOR [Suspect]
     Route: 048
  3. AVALIDE [Concomitant]
  4. LOVAZA [Concomitant]

REACTIONS (4)
  - CAROTID BRUIT [None]
  - DRUG DOSE OMISSION [None]
  - MUSCLE SPASMS [None]
  - PAIN IN EXTREMITY [None]
